FAERS Safety Report 7555232-0 (Version None)
Quarter: 2011Q2

REPORT INFORMATION
  Report Type: 
  Country: None (occurrence: None)
  Receive Date: 20110617
  Receipt Date: 20110602
  Transmission Date: 20111010
  Serious: Yes (Other)
  Sender: FDA-Public Use
  Company Number: GB-AMGEN-GBRSP2011012205

PATIENT
  Age: 45 Year

DRUGS (8)
  1. AMITRIPTYLINE HYDROCHLORIDE [Concomitant]
     Dosage: UNK
  2. DICLOFENAC SODIUM [Suspect]
     Indication: RHEUMATOID ARTHRITIS
     Dosage: UNK
     Route: 048
     Dates: start: 20080101
  3. LEVOTHYROXINE SODIUM [Concomitant]
     Dosage: UNK
  4. METHOTREXATE [Concomitant]
     Dosage: UNK
  5. HUMIRA [Suspect]
     Indication: RHEUMATOID ARTHRITIS
     Dosage: 40 MG/0.8ML, UNK
     Route: 058
     Dates: start: 20100223, end: 20101011
  6. FOLIC ACID [Concomitant]
     Dosage: UNK
  7. ETANERCEPT [Suspect]
     Indication: RHEUMATOID ARTHRITIS
     Dosage: UNK
     Dates: start: 20091103
  8. TRAMADOL HCL [Concomitant]
     Dosage: UNK

REACTIONS (1)
  - RECTAL HAEMORRHAGE [None]
